FAERS Safety Report 9699852 (Version 1)
Quarter: 2013Q4

REPORT INFORMATION
  Report Type: Spontaneous
  Country: FR (occurrence: FR)
  Receive Date: 20131121
  Receipt Date: 20131121
  Transmission Date: 20140711
  Serious: Yes (Disabling)
  Sender: FDA-Public Use
  Company Number: FR-ROCHE-1303119

PATIENT
  Age: 61 Year
  Sex: Female

DRUGS (17)
  1. ZELBORAF [Suspect]
     Indication: MALIGNANT MELANOMA
     Route: 048
     Dates: start: 201210, end: 20130614
  2. CORTANCYL [Suspect]
     Indication: PRODUCT USED FOR UNKNOWN INDICATION
     Dosage: 20 MG
     Route: 048
     Dates: start: 201207
  3. IXPRIM [Concomitant]
     Route: 048
  4. DAFALGAN [Concomitant]
     Route: 048
  5. ACUPAN [Concomitant]
     Route: 048
  6. DUROGESIC [Concomitant]
     Dosage: 75 UG/HOUR
     Route: 065
  7. LYRICA [Concomitant]
     Dosage: 1 DF IN MORNING AND ONE DF IN THE EVENING
     Route: 065
  8. INNOHEP [Concomitant]
     Dosage: .5, ONE SUBCUTANEOUS INJECTION IN THE EVENING
     Route: 058
  9. MACROGOL [Concomitant]
  10. FORLAX (FRANCE) [Concomitant]
  11. ZOPHREN [Concomitant]
  12. PRIMPERAN (FRANCE) [Concomitant]
  13. ROPIVACAINE [Concomitant]
  14. ACTISKENAN [Concomitant]
  15. MOPRAL (FRANCE) [Concomitant]
  16. ZOMETA [Concomitant]
  17. BI-PROFENID [Concomitant]
     Dosage: 100 MG, ONE DF IN THE MORNING AND IN THE EVENING
     Route: 065

REACTIONS (1)
  - Osteonecrosis [Not Recovered/Not Resolved]
